FAERS Safety Report 6597075-0 (Version None)
Quarter: 2010Q1

REPORT INFORMATION
  Report Type: 
  Country: None (occurrence: None)
  Receive Date: 20100223
  Receipt Date: 20100215
  Transmission Date: 20100710
  Serious: Yes (Hospitalization)
  Sender: FDA-Public Use
  Company Number: B0635209A

PATIENT
  Sex: Female
  Weight: 73 kg

DRUGS (8)
  1. REQUIP [Suspect]
     Indication: PARKINSON'S DISEASE
     Dosage: 4MG PER DAY
     Dates: start: 20091202, end: 20091208
  2. NEUPRO [Suspect]
     Indication: PARKINSON'S DISEASE
     Dosage: 16MG PER DAY
     Route: 062
     Dates: start: 20091019, end: 20091202
  3. NACOM [Concomitant]
     Indication: PARKINSON'S DISEASE
     Dates: start: 20091029
  4. STALEVO 100 [Concomitant]
     Indication: PARKINSON'S DISEASE
     Dates: start: 20091030
  5. BERODUAL [Concomitant]
     Indication: CHRONIC OBSTRUCTIVE PULMONARY DISEASE
     Dosage: 1PUFF AS REQUIRED
  6. FLUTIDE [Concomitant]
     Indication: CHRONIC OBSTRUCTIVE PULMONARY DISEASE
  7. ATENOLOL [Concomitant]
     Dosage: 25MG PER DAY
  8. SIFROL [Concomitant]
     Dates: start: 20020101

REACTIONS (1)
  - PARKINSON'S DISEASE [None]
